FAERS Safety Report 18897700 (Version 1)
Quarter: 2021Q1

REPORT INFORMATION
  Report Type: Spontaneous
  Country: US (occurrence: US)
  Receive Date: 20210214
  Receipt Date: 20210214
  Transmission Date: 20210420
  Serious: Yes (Death)
  Sender: FDA-Public Use
  Company Number: None

PATIENT
  Age: 77 Year
  Sex: Female
  Weight: 62.1 kg

DRUGS (21)
  1. ZOFRAN [Concomitant]
     Active Substance: ONDANSETRON HYDROCHLORIDE
  2. PREDNISONE. [Concomitant]
     Active Substance: PREDNISONE
  3. LOSARTAN/HCTZ [Concomitant]
     Active Substance: HYDROCHLOROTHIAZIDE\LOSARTAN
  4. NICODERM CQ [Concomitant]
     Active Substance: NICOTINE
  5. PROTONIX [Concomitant]
     Active Substance: PANTOPRAZOLE SODIUM
  6. ALBUTEROL. [Concomitant]
     Active Substance: ALBUTEROL
  7. LETROZOLE. [Concomitant]
     Active Substance: LETROZOLE
  8. MORPHINE [Concomitant]
     Active Substance: MORPHINE
  9. PROCHLORPERAZINE. [Concomitant]
     Active Substance: PROCHLORPERAZINE
  10. CAPECITABINE. [Suspect]
     Active Substance: CAPECITABINE
     Indication: BREAST CANCER
     Dates: start: 20190613
  11. GABAPENTIN. [Concomitant]
     Active Substance: GABAPENTIN
  12. HALOG [Concomitant]
     Active Substance: HALCINONIDE
  13. ACIDOPHILUS [Concomitant]
     Active Substance: LACTOBACILLUS ACIDOPHILUS
  14. FLUOROURACIL. [Concomitant]
     Active Substance: FLUOROURACIL
  15. ATROVENT [Concomitant]
     Active Substance: IPRATROPIUM BROMIDE
  16. DALIRESP [Concomitant]
     Active Substance: ROFLUMILAST
  17. CLOTRIMAZOLE. [Concomitant]
     Active Substance: CLOTRIMAZOLE
  18. COLLAGENASE SANTYL [Concomitant]
     Active Substance: COLLAGENASE CLOSTRIDIUM HISTOLYTICUM
  19. METRONIDAZOLE. [Concomitant]
     Active Substance: METRONIDAZOLE
  20. PHENYLEPHRINE?DM?GG [Concomitant]
  21. REGLAN [Concomitant]
     Active Substance: METOCLOPRAMIDE HYDROCHLORIDE

REACTIONS (1)
  - Death [None]

NARRATIVE: CASE EVENT DATE: 20210211
